FAERS Safety Report 16940934 (Version 2)
Quarter: 2020Q4

REPORT INFORMATION
  Report Type: Report from Study
  Country: GB (occurrence: GB)
  Receive Date: 20191021
  Receipt Date: 20201217
  Transmission Date: 20210113
  Serious: Yes (Hospitalization, Other)
  Sender: FDA-Public Use
  Company Number: GB-MYLANLABS-2019M1098139

PATIENT
  Age: 44 Year
  Sex: Female

DRUGS (51)
  1. PERTUZUMAB. [Suspect]
     Active Substance: PERTUZUMAB
     Indication: BREAST CANCER METASTATIC
     Dosage: 420 MILLIGRAM, Q3W
     Route: 042
     Dates: start: 20161117, end: 20181122
  2. DEXAMETHASONE. [Concomitant]
     Active Substance: DEXAMETHASONE
     Dosage: 12 MILLIGRAM, QD
     Route: 048
     Dates: start: 20181214, end: 20190124
  3. DEXAMETHASONE. [Concomitant]
     Active Substance: DEXAMETHASONE
     Dosage: 0.5 MILLIGRAM, QD
     Route: 048
     Dates: start: 20180308, end: 20180419
  4. MACROGOL [Concomitant]
     Active Substance: POLYETHYLENE GLYCOLS
     Indication: CONSTIPATION
     Dosage: 2 ORAL
     Route: 065
     Dates: start: 20170922, end: 20190326
  5. TINZAPARIN [Concomitant]
     Active Substance: TINZAPARIN
     Dosage: 4500 UNIT
     Route: 058
     Dates: start: 20181205, end: 20181212
  6. LEVETIRACETAM. [Concomitant]
     Active Substance: LEVETIRACETAM
     Dosage: 1000 MILLIGRAM, QD
     Route: 048
     Dates: start: 20190103, end: 20190326
  7. OXYCONTIN [Concomitant]
     Active Substance: OXYCODONE HYDROCHLORIDE
     Indication: PAIN
     Dosage: 2 DOSAGE FORM, BID
     Route: 048
     Dates: start: 20171116, end: 20180621
  8. BUPRENORPHINE. [Concomitant]
     Active Substance: BUPRENORPHINE
     Indication: PAIN
     Dosage: 1 DOSAGE FORM, QW
     Route: 062
     Dates: start: 20181023, end: 20181212
  9. OXYCODONE [Concomitant]
     Active Substance: OXYCODONE
     Dosage: 40 MILLIGRAM, QD
     Route: 048
     Dates: start: 20171012, end: 20171101
  10. SENNA                              /00142201/ [Concomitant]
     Active Substance: SENNA LEAF
     Indication: CONSTIPATION
     Dosage: 15 MILLIGRAM, QD
     Route: 048
     Dates: start: 20170922, end: 20180404
  11. LACTULOSE. [Concomitant]
     Active Substance: LACTULOSE
     Indication: CONSTIPATION
     Dosage: 10 MILLILITER, PRN
     Route: 048
     Dates: start: 20180830
  12. MOVICOL [Concomitant]
     Active Substance: POLYETHYLENE GLYCOL 3350\POTASSIUM CHLORIDE\SODIUM BICARBONATE\SODIUM CHLORIDE
     Indication: CONSTIPATION
     Dosage: 1 OTHER
     Route: 048
     Dates: start: 20190326
  13. PERTUZUMAB. [Suspect]
     Active Substance: PERTUZUMAB
     Dosage: PLANNED NUMBER OF CYCLES COMPLETED
     Route: 042
     Dates: start: 20161020, end: 20161020
  14. FRUSEMIDE                          /00032601/ [Concomitant]
     Active Substance: FUROSEMIDE
     Indication: JOINT SWELLING
     Dosage: 20 MILLIGRAM, PRN
     Route: 048
     Dates: start: 20170308, end: 20190326
  15. FRUSEMIDE                          /00032601/ [Concomitant]
     Active Substance: FUROSEMIDE
     Indication: PERIPHERAL SWELLING
     Dosage: 20 MILLIGRAM, PRN
     Route: 048
     Dates: start: 20170510, end: 20190326
  16. OXYCODONE [Concomitant]
     Active Substance: OXYCODONE
     Indication: BACK PAIN
     Dosage: 40 MILLIGRAM, QD
     Route: 048
     Dates: start: 20171101, end: 20171130
  17. TRASTUZUMAB. [Suspect]
     Active Substance: TRASTUZUMAB
     Indication: BREAST CANCER METASTATIC
     Dosage: 600 MILLIGRAM, Q3W
     Route: 041
     Dates: start: 20161117, end: 20181122
  18. DEXAMETHASONE. [Concomitant]
     Active Substance: DEXAMETHASONE
     Indication: VISUAL IMPAIRMENT
     Dosage: 14 MILLIGRAM, QD
     Route: 048
     Dates: start: 20190124, end: 20190326
  19. DEXAMETHASONE. [Concomitant]
     Active Substance: DEXAMETHASONE
     Indication: SEIZURE
     Dosage: 0.25 MICROGRAM, QD
     Route: 048
     Dates: start: 20190121, end: 20190326
  20. DEXAMETHASONE. [Concomitant]
     Active Substance: DEXAMETHASONE
     Dosage: 6 MILLIGRAM, QD
     Route: 048
     Dates: start: 20190125
  21. GABAPENTIN. [Concomitant]
     Active Substance: GABAPENTIN
     Indication: PAIN
     Dosage: 900 MILLIGRAM, QD
     Route: 048
     Dates: start: 20171116, end: 20180621
  22. DALTEPARIN [Concomitant]
     Active Substance: DALTEPARIN
     Indication: DEEP VEIN THROMBOSIS
     Dosage: 18000 INTERNATIONAL UNIT, QD
     Route: 058
     Dates: start: 20170418, end: 20180510
  23. AMOXICILLIN. [Concomitant]
     Active Substance: AMOXICILLIN
     Indication: RHINITIS
     Dosage: 500 MILLIGRAM
     Route: 048
     Dates: start: 20181205, end: 20181205
  24. DICLOFENAC [Concomitant]
     Active Substance: DICLOFENAC
     Dosage: 1 GTT DROPS, PRN
     Route: 061
     Dates: start: 20181023, end: 20190326
  25. ORAMORPH [Concomitant]
     Active Substance: MORPHINE SULFATE
     Indication: PAIN
     Dosage: 5 MILLIGRAM, PRN
     Route: 048
     Dates: start: 20180830, end: 20190326
  26. TRASTUZUMAB. [Suspect]
     Active Substance: TRASTUZUMAB
     Dosage: PLANNED NUMBER OF CYCLES COMPLETED
     Route: 042
     Dates: start: 20161020, end: 20161020
  27. DOCETAXEL. [Suspect]
     Active Substance: DOCETAXEL
     Indication: BREAST CANCER METASTATIC
     Dosage: LAST DOSE RECEIVED ON 21/MAR/2017 6 CYCLES
     Route: 042
     Dates: start: 20161117
  28. DEXAMETHASONE. [Concomitant]
     Active Substance: DEXAMETHASONE
     Dosage: 8 MILLIGRAM, QD
     Route: 048
     Dates: start: 20181208, end: 20181213
  29. DEXAMETHASONE. [Concomitant]
     Active Substance: DEXAMETHASONE
     Dosage: 0.25 MICROGRAM, QD
     Route: 048
     Dates: start: 20180419, end: 20180510
  30. RAMIPRIL. [Concomitant]
     Active Substance: RAMIPRIL
     Indication: LEFT VENTRICULAR DYSFUNCTION
     Dosage: 1.25 MILLIGRAM, QD
     Route: 048
     Dates: start: 20170608, end: 20190326
  31. BUPRENORPHINE. [Concomitant]
     Active Substance: BUPRENORPHINE
     Dosage: 10 MICROGRAM, QW
     Route: 062
     Dates: start: 20181212, end: 20190326
  32. NAPROXEN SODIUM. [Concomitant]
     Active Substance: NAPROXEN SODIUM
     Indication: BACK PAIN
     Route: 048
     Dates: start: 20170922, end: 20190326
  33. OXYCODONE [Concomitant]
     Active Substance: OXYCODONE
     Dosage: 180 MILLIGRAM, QD
     Route: 048
     Dates: start: 20171130, end: 20190326
  34. PARACETAMOL [Concomitant]
     Active Substance: ACETAMINOPHEN
     Indication: SWELLING FACE
     Dosage: 500 MILLIGRAM, PRN
     Route: 048
     Dates: start: 20170122, end: 20190326
  35. ONDASETRON                         /00955301/ [Concomitant]
     Active Substance: ONDANSETRON
     Indication: NAUSEA
     Dosage: 4 MILLIGRAM, PRN
     Route: 048
     Dates: start: 20170510
  36. MORPHINE SULPHATE [Concomitant]
     Active Substance: MORPHINE SULFATE
     Indication: BACK PAIN
     Dosage: SOLUTION
     Route: 048
     Dates: start: 20170922, end: 20190326
  37. LAXIDO [Concomitant]
     Active Substance: POLYETHYLENE GLYCOL 3350\POTASSIUM CHLORIDE\SODIUM BICARBONATE\SODIUM CHLORIDE
     Indication: CONSTIPATION
     Dosage: 2 OTHER
     Route: 048
     Dates: start: 20171009, end: 20190326
  38. DEXAMETHASONE. [Concomitant]
     Active Substance: DEXAMETHASONE
     Dosage: 06 MILLIGRAM, QD
     Route: 048
     Dates: start: 20181205, end: 20181205
  39. DEXAMETHASONE. [Concomitant]
     Active Substance: DEXAMETHASONE
     Dosage: 2 MILLIGRAM, QD
     Route: 048
     Dates: start: 20170308, end: 20170831
  40. IBUPROFEN. [Concomitant]
     Active Substance: IBUPROFEN
     Indication: PAIN
     Dosage: 600 MILLIGRAM, QD
     Route: 048
     Dates: start: 20180308, end: 20180621
  41. METOCLOPRAMIDE. [Concomitant]
     Active Substance: METOCLOPRAMIDE
     Dosage: UNK
     Route: 042
     Dates: start: 20161117, end: 20161117
  42. DEXAMETHASONE. [Concomitant]
     Active Substance: DEXAMETHASONE
     Dosage: 06 MILLIGRAM, QD
     Route: 048
     Dates: start: 20181206, end: 20181207
  43. DEXAMETHASONE. [Concomitant]
     Active Substance: DEXAMETHASONE
     Dosage: 4 MILLIGRAM, QD
     Route: 048
     Dates: start: 20170126, end: 20170308
  44. DEXAMETHASONE. [Concomitant]
     Active Substance: DEXAMETHASONE
     Dosage: 8 MILLIGRAM, QD
     Route: 048
     Dates: start: 20161116, end: 20161119
  45. LEVETIRACETAM. [Concomitant]
     Active Substance: LEVETIRACETAM
     Indication: SEIZURE
     Dosage: 500 MILLIGRAM, QD
     Route: 048
     Dates: start: 20181213, end: 20190103
  46. METOCLOPRAMIDE. [Concomitant]
     Active Substance: METOCLOPRAMIDE
     Dosage: 10 MILLIGRAM, PRN
     Route: 048
     Dates: start: 20170510, end: 20190326
  47. DEXAMETHASONE. [Concomitant]
     Active Substance: DEXAMETHASONE
     Dosage: 01 MILLIGRAM, QD
     Route: 048
     Dates: start: 20170831, end: 20180308
  48. LANSOPRAZOLE. [Concomitant]
     Active Substance: LANSOPRAZOLE
     Dosage: 30 MILLIGRAM, QD
     Route: 048
     Dates: start: 20190326
  49. FRUSEMIDE                          /00032601/ [Concomitant]
     Active Substance: FUROSEMIDE
     Indication: OEDEMA PERIPHERAL
  50. BISACODYL. [Concomitant]
     Active Substance: BISACODYL
     Indication: CONSTIPATION
     Dosage: 10 MILLIGRAM, QD
     Route: 048
     Dates: start: 20171009, end: 20190326
  51. CANDESTAN [Concomitant]
     Indication: CANDIDA INFECTION
     Dosage: 100 MILLIGRAM
     Route: 067
     Dates: start: 20180419, end: 20180419

REACTIONS (9)
  - Peripheral swelling [Not Recovered/Not Resolved]
  - Joint swelling [Not Recovered/Not Resolved]
  - Ejection fraction decreased [Recovered/Resolved]
  - Swelling face [Recovered/Resolved]
  - Deep vein thrombosis [Recovered/Resolved]
  - Vertebroplasty [Recovered/Resolved]
  - Back pain [Not Recovered/Not Resolved]
  - Constipation [Recovering/Resolving]
  - Spinal compression fracture [Recovered/Resolved]

NARRATIVE: CASE EVENT DATE: 20170122
